FAERS Safety Report 9625869 (Version 1)
Quarter: 2013Q4

REPORT INFORMATION
  Report Type: Spontaneous
  Country: US (occurrence: None)
  Receive Date: 20131015
  Receipt Date: 20131015
  Transmission Date: 20140711
  Serious: Yes (Disabling)
  Sender: FDA-Public Use
  Company Number: None

PATIENT
  Age: 49 Year
  Sex: Female
  Weight: 64.41 kg

DRUGS (1)
  1. LEVAQUIN [Suspect]
     Indication: DIVERTICULITIS
     Dosage: 7
     Route: 048
     Dates: start: 20080319, end: 20080321

REACTIONS (7)
  - Dysgeusia [None]
  - Neuropathy peripheral [None]
  - Dry eye [None]
  - Irritable bowel syndrome [None]
  - Musculoskeletal disorder [None]
  - Tinnitus [None]
  - Refusal of treatment by patient [None]
